FAERS Safety Report 15223050 (Version 1)
Quarter: 2018Q3

REPORT INFORMATION
  Report Type: Spontaneous
  Country: US (occurrence: US)
  Receive Date: 20180705
  Receipt Date: 20180705
  Transmission Date: 20181010
  Serious: Yes (Disabling, Other)
  Sender: FDA-Public Use
  Company Number: None

PATIENT
  Age: 68 Year
  Sex: Female
  Weight: 81.65 kg

DRUGS (12)
  1. LANTUS [Concomitant]
     Active Substance: INSULIN GLARGINE
  2. HYDROCHLOROTHIAZIDE. [Concomitant]
     Active Substance: HYDROCHLOROTHIAZIDE
  3. CYANACOBALAM [Concomitant]
  4. CPAP MACHINE [Concomitant]
  5. BABY ASPIRIN [Concomitant]
     Active Substance: ASPIRIN
  6. CRESTOR [Concomitant]
     Active Substance: ROSUVASTATIN CALCIUM
  7. PROAIR HFA [Concomitant]
     Active Substance: ALBUTEROL SULFATE
  8. CENTRUM SILVER [Concomitant]
     Active Substance: MINERALS\VITAMINS
  9. AMLODIPINE [Concomitant]
     Active Substance: AMLODIPINE BESYLATE
  10. NOVOLOG [Concomitant]
     Active Substance: INSULIN ASPART
  11. CALCIUM W/ VITAMIN D [Concomitant]
  12. ROSUVASTATIN. [Suspect]
     Active Substance: ROSUVASTATIN
     Indication: BLOOD CHOLESTEROL INCREASED
     Route: 048
     Dates: start: 20180330, end: 20180503

REACTIONS (9)
  - Burning sensation [None]
  - Bone pain [None]
  - Insurance issue [None]
  - Product substitution issue [None]
  - Arthralgia [None]
  - Asthenia [None]
  - Gait disturbance [None]
  - Joint range of motion decreased [None]
  - Pain in extremity [None]

NARRATIVE: CASE EVENT DATE: 20180402
